FAERS Safety Report 9643773 (Version 2)
Quarter: 2013Q4

REPORT INFORMATION
  Report Type: Spontaneous
  Country: JP (occurrence: JP)
  Receive Date: 20131024
  Receipt Date: 20131029
  Transmission Date: 20140711
  Serious: Yes (Other)
  Sender: FDA-Public Use
  Company Number: JP-PFIZER INC-2013300609

PATIENT
  Age: 26 Year
  Sex: 0

DRUGS (4)
  1. LYRICA [Suspect]
     Dosage: 25 MG, DAILY
     Route: 048
     Dates: start: 201308
  2. LYRICA [Suspect]
     Dosage: 75 MG, DAILY
     Route: 048
     Dates: end: 20131019
  3. LENDORMIN [Concomitant]
  4. PAXIL [Concomitant]
     Dosage: UNK MG, 3X/DAY

REACTIONS (7)
  - Oculomucocutaneous syndrome [Unknown]
  - Ocular hyperaemia [Unknown]
  - Eyelid oedema [Unknown]
  - Oropharyngeal pain [Unknown]
  - Pyrexia [Not Recovered/Not Resolved]
  - Malaise [Unknown]
  - Bedridden [Unknown]
